FAERS Safety Report 9619846 (Version 2)
Quarter: 2013Q4

REPORT INFORMATION
  Report Type: Report from Study
  Country: DE (occurrence: DE)
  Receive Date: 20131014
  Receipt Date: 20131014
  Transmission Date: 20140711
  Serious: Yes (Other)
  Sender: FDA-Public Use
  Company Number: DE-ABBVIE-12P-062-1025090-00

PATIENT
  Age: 36 Year
  Sex: Female

DRUGS (6)
  1. HUMIRA [Suspect]
     Indication: PSORIATIC ARTHROPATHY
     Route: 058
     Dates: start: 20120626, end: 20121127
  2. HUMIRA [Suspect]
     Indication: PSORIASIS
  3. XARELTO [Concomitant]
     Indication: COAGULATION TIME PROLONGED
     Dates: start: 2010, end: 201212
  4. XARELTO [Concomitant]
     Indication: HYPERFIBRINOGENAEMIA
  5. HEPARIN [Concomitant]
     Indication: COAGULATION TIME PROLONGED
     Dates: start: 201212
  6. HEPARIN [Concomitant]
     Indication: HYPERFIBRINOGENAEMIA

REACTIONS (2)
  - Abortion spontaneous [Unknown]
  - Unintended pregnancy [Unknown]
